FAERS Safety Report 9023909 (Version 1)
Quarter: 2013Q1

REPORT INFORMATION
  Report Type: Spontaneous
  Country: US (occurrence: US)
  Receive Date: 20130121
  Receipt Date: 20130121
  Transmission Date: 20140127
  Serious: No
  Sender: FDA-Public Use
  Company Number: US-PFIZER INC-2013022179

PATIENT
  Age: 65 Year
  Sex: Male
  Weight: 63.49 kg

DRUGS (2)
  1. GLIPIZIDE XL [Suspect]
     Indication: DIABETES MELLITUS
     Dosage: 20 MG, DAILY
     Dates: start: 201211
  2. CARVEDILOL [Concomitant]
     Indication: HYPERTENSION
     Dosage: 25 MG, 2X/DAY

REACTIONS (2)
  - Drug ineffective [Unknown]
  - Blood glucose abnormal [Not Recovered/Not Resolved]
